FAERS Safety Report 13357402 (Version 1)
Quarter: 2017Q1

REPORT INFORMATION
  Report Type: Report from Study
  Country: US (occurrence: US)
  Receive Date: 20170322
  Receipt Date: 20170322
  Transmission Date: 20170429
  Serious: Yes (Hospitalization)
  Sender: FDA-Public Use
  Company Number: US-VIFOR (INTERNATIONAL) INC.-VIT-2017-01361

PATIENT
  Age: 74 Year
  Sex: Female

DRUGS (8)
  1. TORASEMIDE [Concomitant]
     Active Substance: TORSEMIDE
  2. FERROUS SULFATE. [Concomitant]
     Active Substance: FERROUS SULFATE
  3. CLAVULANATE POTASSIUM/AMOXICILLIN [Concomitant]
  4. VELTASSA [Suspect]
     Active Substance: PATIROMER
     Dates: start: 20161231
  5. VELTASSA [Suspect]
     Active Substance: PATIROMER
     Indication: HYPERKALAEMIA
     Route: 048
  6. NYSTOP [Concomitant]
     Active Substance: NYSTATIN
  7. FLUCONAZOLE. [Concomitant]
     Active Substance: FLUCONAZOLE
  8. BETAMETHASONE DIPROPIONATE/CLOTRIMAZOLE [Concomitant]

REACTIONS (4)
  - Constipation [Unknown]
  - Inappropriate schedule of drug administration [Unknown]
  - Cystitis [Unknown]
  - Vomiting [Unknown]

NARRATIVE: CASE EVENT DATE: 20161231
